FAERS Safety Report 18441100 (Version 1)
Quarter: 2020Q4

REPORT INFORMATION
  Report Type: Spontaneous
  Country: US (occurrence: US)
  Receive Date: 20201029
  Receipt Date: 20201029
  Transmission Date: 20210114
  Serious: No
  Sender: FDA-Public Use
  Company Number: None

PATIENT
  Age: 70 Year
  Sex: Female
  Weight: 66.06 kg

DRUGS (11)
  1. TEMOZOLOMIDE. [Suspect]
     Active Substance: TEMOZOLOMIDE
     Indication: BRAIN NEOPLASM MALIGNANT
     Route: 048
     Dates: start: 20200702, end: 20201029
  2. ALBUTEROL HFA [Concomitant]
     Active Substance: ALBUTEROL SULFATE
  3. DEXAMETHASONE 4MG [Concomitant]
     Active Substance: DEXAMETHASONE
  4. LEVETIRACETAM 500MG [Concomitant]
     Active Substance: LEVETIRACETAM
  5. ELIQUIS [Concomitant]
     Active Substance: APIXABAN
  6. PANTOPRAZOLE 40MG [Concomitant]
     Active Substance: PANTOPRAZOLE SODIUM
  7. ATORVASTATIN 10MG [Concomitant]
     Active Substance: ATORVASTATIN
  8. VENLAFAXINE 75MG [Concomitant]
     Active Substance: VENLAFAXINE HYDROCHLORIDE
  9. ONDANSETRON 8MG [Concomitant]
     Active Substance: ONDANSETRON
  10. OXYCODONE 5MG [Concomitant]
     Active Substance: OXYCODONE
  11. AMLODIPINE [Concomitant]
     Active Substance: AMLODIPINE BESYLATE

REACTIONS (3)
  - Chromaturia [None]
  - Nausea [None]
  - Asthenia [None]

NARRATIVE: CASE EVENT DATE: 20201029
